FAERS Safety Report 5723816-8 (Version None)
Quarter: 2008Q2

REPORT INFORMATION
  Report Type: 
  Country: None (occurrence: None)
  Receive Date: 20080430
  Receipt Date: 20080424
  Transmission Date: 20081010
  Serious: Yes (Hospitalization)
  Sender: FDA-Public Use
  Company Number: FR-AVENTIS-200811594FR

PATIENT
  Age: 84 Year
  Sex: Female

DRUGS (5)
  1. LASILIX                            /00032601/ [Suspect]
     Indication: DRUG USE FOR UNKNOWN INDICATION
     Route: 048
     Dates: end: 20080215
  2. ROCALTROL [Suspect]
     Indication: DRUG USE FOR UNKNOWN INDICATION
     Route: 048
     Dates: end: 20080215
  3. RENAGEL                            /01459902/ [Suspect]
     Indication: DRUG USE FOR UNKNOWN INDICATION
     Route: 048
     Dates: end: 20080215
  4. SINTROM [Suspect]
     Indication: DRUG USE FOR UNKNOWN INDICATION
     Route: 048
     Dates: end: 20080215
  5. NEORECORMON [Suspect]
     Indication: DRUG USE FOR UNKNOWN INDICATION
     Dates: end: 20080211

REACTIONS (3)
  - HYPOTENSION [None]
  - PRURITUS [None]
  - RASH MORBILLIFORM [None]
